FAERS Safety Report 11394299 (Version 3)
Quarter: 2018Q1

REPORT INFORMATION
  Report Type: Report from Study
  Country: None (occurrence: GB)
  Receive Date: 20150819
  Receipt Date: 20180112
  Transmission Date: 20180508
  Serious: Yes (Death, Hospitalization)
  Sender: FDA-Public Use
  Company Number: GB-ABBVIE-15K-167-1444999-00

PATIENT
  Age: 68 Year
  Sex: Male
  Weight: 94 kg

DRUGS (3)
  1. METHOTREXATE. [Concomitant]
     Active Substance: METHOTREXATE
     Indication: PRODUCT USED FOR UNKNOWN INDICATION
     Dates: start: 20130129, end: 20150119
  2. HUMIRA [Suspect]
     Active Substance: ADALIMUMAB
     Indication: PSORIASIS
     Route: 058
     Dates: start: 20140715
  3. LISINOPRIL. [Concomitant]
     Active Substance: LISINOPRIL
     Indication: HYPERTENSION
     Dates: start: 20040101, end: 20150729

REACTIONS (6)
  - Ischaemic stroke [Unknown]
  - Myocardial ischaemia [Fatal]
  - Arteriosclerosis coronary artery [Fatal]
  - Acute coronary syndrome [Recovered/Resolved]
  - Coronary artery stenosis [Unknown]
  - Chest pain [Recovered/Resolved]

NARRATIVE: CASE EVENT DATE: 20141223
